FAERS Safety Report 10433040 (Version 1)
Quarter: 2014Q3

REPORT INFORMATION
  Report Type: Spontaneous
  Country: IT (occurrence: IT)
  Receive Date: 20140905
  Receipt Date: 20140905
  Transmission Date: 20150326
  Serious: Yes (Hospitalization)
  Sender: FDA-Public Use
  Company Number: IT-ELI_LILLY_AND_COMPANY-IT201408008675

PATIENT
  Age: 80 Year
  Sex: Female
  Weight: 67 kg

DRUGS (10)
  1. GABAPENTIN. [Suspect]
     Active Substance: GABAPENTIN
     Indication: BIPOLAR DISORDER
     Dosage: 800 MG, QD
     Route: 048
     Dates: start: 20140401, end: 20140416
  2. DEPAKENE [Interacting]
     Active Substance: VALPROIC ACID
     Indication: BIPOLAR DISORDER
     Dosage: 2 DF, QD
     Route: 048
     Dates: start: 20140401, end: 20140416
  3. NIMODIPINE. [Concomitant]
     Active Substance: NIMODIPINE
     Indication: HYPERTENSION
     Dosage: UNK, UNKNOWN
     Route: 065
     Dates: start: 201208
  4. LARGACTIL /00011902/ [Interacting]
     Active Substance: CHLORPROMAZINE HYDROCHLORIDE
     Indication: BIPOLAR DISORDER
     Dosage: 1 DF, QD
     Route: 048
     Dates: start: 20140401, end: 20140416
  5. CARBOLITHIUM [Concomitant]
     Active Substance: LITHIUM CARBONATE
     Indication: BIPOLAR DISORDER
     Dosage: 150 MG, UNKNOWN
     Route: 048
     Dates: start: 20140401, end: 20140416
  6. ZOCOR [Concomitant]
     Active Substance: SIMVASTATIN
     Indication: DYSLIPIDAEMIA
     Dosage: 1 DF, UNKNOWN
     Route: 048
     Dates: start: 201008
  7. CARDIRENE [Concomitant]
     Active Substance: ASPIRIN DL-LYSINE
     Indication: PRODUCT USED FOR UNKNOWN INDICATION
     Dosage: 1 DF, UNKNOWN
     Route: 048
     Dates: start: 201008
  8. OLANZAPINE. [Suspect]
     Active Substance: OLANZAPINE
     Indication: BIPOLAR DISORDER
     Dosage: 5 MG, QD
     Route: 048
     Dates: start: 20140401, end: 20140416
  9. JUMEX [Concomitant]
     Active Substance: SELEGILINE HYDROCHLORIDE
     Indication: BIPOLAR DISORDER
     Dosage: 1 DF, UNKNOWN
     Route: 048
     Dates: start: 20140401, end: 20140416
  10. NOVONORM [Concomitant]
     Active Substance: REPAGLINIDE
     Indication: DIABETES MELLITUS
     Dosage: 3 DF, UNKNOWN
     Route: 048
     Dates: start: 201108

REACTIONS (5)
  - Drug interaction [Recovering/Resolving]
  - Fall [Recovering/Resolving]
  - Head injury [Recovering/Resolving]
  - Sedation [Recovering/Resolving]
  - Wound [Unknown]

NARRATIVE: CASE EVENT DATE: 20140417
